FAERS Safety Report 5015157-1 (Version None)
Quarter: 2006Q2

REPORT INFORMATION
  Report Type: 
  Country: None (occurrence: None)
  Receive Date: 20060530
  Receipt Date: 20060515
  Transmission Date: 20061013
  Serious: Yes (Hospitalization)
  Sender: FDA-Public Use
  Company Number: SGB1-2006-00274

PATIENT
  Age: 53 Year
  Sex: Male

DRUGS (15)
  1. LANTHANUM CARBONATE [Suspect]
     Indication: HYPERPHOSPHATAEMIA
     Dosage: ORAL
     Route: 048
     Dates: start: 20050329
  2. NOVOLIN R [Suspect]
     Indication: DIABETES MELLITUS
     Dosage: SEE IMAGE
     Route: 058
     Dates: end: 20050511
  3. NOVOLIN R [Suspect]
     Indication: DIABETES MELLITUS
     Dosage: SEE IMAGE
     Route: 058
     Dates: end: 20060512
  4. NOVOLIN R [Suspect]
     Indication: DIABETES MELLITUS
     Dosage: SEE IMAGE
     Route: 058
     Dates: start: 20050707
  5. NOVOLIN N [Suspect]
     Indication: DIABETES MELLITUS
     Dosage: SEE IMAGE
     Route: 058
     Dates: start: 20050531, end: 20060510
  6. NOVOLIN N [Suspect]
     Indication: DIABETES MELLITUS
     Dosage: SEE IMAGE
     Route: 058
     Dates: start: 20060511
  7. DORNER (BERAPROST SODIUM) [Concomitant]
  8. AMLODIPINE BESYLATE [Suspect]
  9. AMOBAN (ZOPICLONE) [Concomitant]
  10. FERRICON (CIDEFERRON) [Concomitant]
  11. HEPARIN [Concomitant]
  12. ........................ [Concomitant]
  13. ..................... [Concomitant]
  14. .................. [Concomitant]
  15. ...................... [Concomitant]

REACTIONS (4)
  - BLOOD GLUCOSE INCREASED [None]
  - COLD SWEAT [None]
  - HYPOGLYCAEMIA [None]
  - PROCEDURAL COMPLICATION [None]
